FAERS Safety Report 5799255-0 (Version None)
Quarter: 2008Q3

REPORT INFORMATION
  Report Type: 
  Country: None (occurrence: None)
  Receive Date: 20080702
  Receipt Date: 20080624
  Transmission Date: 20090109
  Serious: Yes (Hospitalization, Disabling)
  Sender: FDA-Public Use
  Company Number: JP-PFIZER INC-2008047855

PATIENT
  Sex: Female
  Weight: 46 kg

DRUGS (14)
  1. AROMASIN [Suspect]
     Indication: BREAST CANCER
     Route: 048
     Dates: start: 20070605, end: 20080519
  2. BUFFERIN [Suspect]
     Indication: ANGINA PECTORIS
     Dosage: DAILY DOSE:81MG-FREQ:FREQUENCY: QD
  3. GASTER [Concomitant]
     Indication: GASTRITIS
  4. GASMOTIN [Concomitant]
     Indication: GASTRITIS
  5. DIGOXIN [Concomitant]
     Indication: CARDIAC FAILURE
  6. ADALAT [Concomitant]
     Indication: HYPERTENSION
  7. MEXITIL [Concomitant]
     Indication: DIABETES MELLITUS
  8. SIGMART [Concomitant]
  9. SESDEN [Concomitant]
     Indication: GASTRITIS
  10. EUGLUCON [Concomitant]
     Indication: DIABETES MELLITUS
  11. MIGLITOL [Concomitant]
     Indication: DIABETES MELLITUS
  12. FELTASE [Concomitant]
  13. MICARDIS [Concomitant]
     Indication: HYPERTENSION
  14. NITROGLYCERIN [Concomitant]

REACTIONS (1)
  - HAEMORRHAGIC CEREBRAL INFARCTION [None]
